FAERS Safety Report 9735865 (Version 1)
Quarter: 2013Q4

REPORT INFORMATION
  Report Type: Spontaneous
  Country: US (occurrence: None)
  Receive Date: 20131204
  Receipt Date: 20131204
  Transmission Date: 20140711
  Serious: Yes (Hospitalization, Disabling)
  Sender: FDA-Public Use
  Company Number: 2044258

PATIENT
  Age: 60 Year
  Sex: Female

DRUGS (3)
  1. HEPARIN SODIUM [Suspect]
     Indication: THROMBOSIS
     Dosage: (NOT OTHERWISE SPECIFIED)
     Route: 042
  2. HEPARIN SODIUM [Suspect]
     Indication: PULMONARY EMBOLISM
     Dosage: (NOT OTHERWISE SPECIFIED)
     Route: 042
  3. WARFARIN [Concomitant]

REACTIONS (8)
  - Platelet count decreased [None]
  - Heparin-induced thrombocytopenia [None]
  - Thrombosis in device [None]
  - Deep vein thrombosis [None]
  - Skin discolouration [None]
  - Renal failure acute [None]
  - Leg amputation [None]
  - Gangrene [None]
